FAERS Safety Report 10504085 (Version 2)
Quarter: 2014Q4

REPORT INFORMATION
  Report Type: Spontaneous
  Country: US (occurrence: None)
  Receive Date: 20141006
  Receipt Date: 20141022
  Transmission Date: 20150528
  Serious: Yes (Hospitalization, Other)
  Sender: FDA-Public Use
  Company Number: ADR-2014-01656

PATIENT
  Sex: Female

DRUGS (31)
  1. FAT EMULSION NOS [Suspect]
     Active Substance: EGG PHOSPHOLIPIDS\SAFFLOWER OIL\SOYBEAN OIL
     Dosage: WITH TPN EMULSION (INTRALIPID)
     Route: 042
  2. FLUTICASONE PROPIONATE. [Suspect]
     Active Substance: FLUTICASONE PROPIONATE
     Dosage: 110 MCG/ACT TAKE 2 PUFFS BY INHALATION
     Route: 055
  3. HYDROCORTISONE CREAM [Suspect]
     Active Substance: HYDROCORTISONE
     Dosage: 1 % TO BE USED ON IRRITATED SKIN
  4. PHOSPHA 250 NEUTRAL [Suspect]
     Active Substance: POTASSIUM PHOSPHATE, MONOBASIC\SODIUM PHOSPHATE, DIBASIC, ANHYDROUS\SODIUM PHOSPHATE, MONOBASIC, MONOHYDRATE
     Dosage: GIVE 1 TAB (8MMOL TOTAL) THRY THE G TYPE 2 TIMES A DAY
     Route: 048
  5. LACOSAMIDE [Suspect]
     Active Substance: LACOSAMIDE
     Dosage: 10 MG/ML GIVE 10 ML (100 MG TOTAL)
     Route: 048
  6. LIDOCAINE AND PRILOCAINE [Suspect]
     Active Substance: LIDOCAINE\PRILOCAINE
     Dosage: USE WHEN DIRECTED FOR PORT ACCESS
  7. OXYCODONE HCL [Suspect]
     Active Substance: OXYCODONE HYDROCHLORIDE
     Indication: PAIN
     Dosage: 5MG/5ML TAKE 1.5 ML (1.5 MG TOTAL) BY MOUTH 4-6 HOURS AS NEEDED FOR PAIN
  8. CITRULLINE [Suspect]
     Active Substance: CITRULLINE
     Route: 048
  9. LEVOCARNITINE. [Suspect]
     Active Substance: LEVOCARNITINE
     Dosage: 1 GM/10 ML SUGAR FREE PO SOLN (SOLUTION)
  10. METRONIDAZOLE. [Suspect]
     Active Substance: METRONIDAZOLE
     Dosage: 25 MG/ML GIVE 12 ML (300 MG TOTAL), TO BE ALTERNATED EVERY 2 WEEKS WITH RIFAXIMIN
     Route: 048
  11. ERGOCALCIFEROL. [Suspect]
     Active Substance: ERGOCALCIFEROL
     Dosage: 8000 UNIT/ML GIVE 0.25 ML (2000 UNITS TOTAL) THRU THE G TUBE 1 TIME A DAY
     Route: 048
  12. HYDROCORTISONE. [Suspect]
     Active Substance: HYDROCORTISONE
     Dosage: 10 MG TOTAL THRU THE G TUBE 3 TIMES A DAY AS NEEDED (ACUTE ILLNESS).
     Route: 048
  13. SODIUM CHLORIDE. [Suspect]
     Active Substance: SODIUM CHLORIDE
     Dosage: 7% NEBULIZE 4 ML WITH A NEBULIZER ; TPN
     Route: 042
  14. TYLENOL [Suspect]
     Active Substance: ACETAMINOPHEN
     Dosage: (544MGTOTAL) BY MOUTH EVERY 4-6 HOURS AS NEED FOR PAIN
  15. CIPRODEX [Suspect]
     Active Substance: CIPROFLOXACIN HYDROCHLORIDE\DEXAMETHASONE
     Dosage: 4 DROPS TOPICAL ROUTE 2 TIMES A DAY
     Route: 061
  16. CLOBAZAM [Suspect]
     Active Substance: CLOBAZAM
     Dosage: 10 MG GIVE 1.25 TABS (12.5 MG TOTAL) THRU G TUBE 1 TIME A DAY
     Route: 048
  17. LANSOPRAZOLE. [Suspect]
     Active Substance: LANSOPRAZOLE
     Dosage: 30 MG GIVE 1 TAB (30 MG TOTAL)
     Route: 048
  18. LEVETIRACETAM. [Suspect]
     Active Substance: LEVETIRACETAM
     Dosage: 100 MG/ML GIVE 8.6 ML (860 MG TOTAL)
     Route: 048
  19. TOBRAMYCIN. [Suspect]
     Active Substance: TOBRAMYCIN
     Dosage: 300MG/5ML NEBULIZE 5 ML (300MG TOTAL) WITH A NEBULIZER
  20. CATHFLO ACTIVASE [Suspect]
     Active Substance: ALTEPLASE
     Dosage: (2MGTOTAL) IV ROUTE EVERY 7 DAYS AS NEEDED FOR ADMINISTER AS DIRECTED (DECLOT CATHTETER LINE
     Route: 042
  21. DOCUSATE SODIUM. [Suspect]
     Active Substance: DOCUSATE SODIUM
     Dosage: 283 MG INSERT 1 ENEMA (283MG TOTAL) INTO RECTUM 1 TIME DAY AS NEEDED
  22. LAMOTRIGINE. [Suspect]
     Active Substance: LAMOTRIGINE
     Dosage: 25 MG GIVE 3 TABS (75 MG TOTAL)
     Route: 048
  23. LEVALBUTEROL HCL [Suspect]
     Active Substance: LEVALBUTEROL HYDROCHLORIDE
     Dosage: 0.63 MG/3ML NEBULIZE 3ML (0.63MG TOTAL) WITH A NEBULIZER
  24. ZINC SULFATE [Suspect]
     Active Substance: ZINC SULFATE\ZINC SULFATE ANHYDROUS
     Dosage: 8.1 MG/ML ELEMENTAL ZINC GIVE 4.4 ML (35.64MG TOTAL)
     Route: 048
  25. BACLOFEN. [Suspect]
     Active Substance: BACLOFEN
     Indication: MUSCLE SPASTICITY
  26. PERIDEX [Suspect]
     Active Substance: CHLORHEXIDINE GLUCONATE
     Dosage: SWISH SPIT ROUTE 2 TIMES A DAY
  27. DIAZEPAM. [Suspect]
     Active Substance: DIAZEPAM
     Dosage: 12.5 INSERT 12.5 MG INTO RECTUM AT BEDSIDE AS NEEDED
  28. FERROUS SULFATE [Suspect]
     Active Substance: FERROUS SULFATE\FERROUS SULFATE, DRIED
     Dosage: 75 (15 FE) MG/ML GIVE 3 ML (45 MG TOTAL) THRU THE G TUBE
     Route: 048
  29. BACLOFEN. [Suspect]
     Active Substance: BACLOFEN
     Dosage: TAKE 2 TABS (40MG TOTAL) BY MOUTH 3 TIMES A DAY
     Route: 048
  30. ONDANSETRON HCL [Suspect]
     Active Substance: ONDANSETRON HYDROCHLORIDE
     Dosage: 4MG/5ML GIVE 5 ML (4MG TOTAL)
     Route: 048
  31. PROPRANOLOL HCL [Suspect]
     Active Substance: PROPRANOLOL HYDROCHLORIDE
     Dosage: 20MG/5ML GIVE 3ML (9.2MGTOTAL)
     Route: 048

REACTIONS (6)
  - Muscle spasms [None]
  - Seizure [None]
  - Clonus [None]
  - Device issue [None]
  - Respiratory disorder [None]
  - Discomfort [None]
